FAERS Safety Report 11444661 (Version 3)
Quarter: 2016Q1

REPORT INFORMATION
  Report Type: Spontaneous
  Country: JP (occurrence: JP)
  Receive Date: 20150902
  Receipt Date: 20160201
  Transmission Date: 20160525
  Serious: Yes (Hospitalization)
  Sender: FDA-Public Use
  Company Number: JP-ABBVIE-15K-087-1350129-00

PATIENT
  Age: 17 Year
  Sex: Male
  Weight: 41.4 kg

DRUGS (20)
  1. COLCHICINE. [Concomitant]
     Active Substance: COLCHICINE
     Route: 048
     Dates: start: 20150313, end: 20150319
  2. MESALAZINE [Concomitant]
     Active Substance: MESALAMINE
     Indication: BEHCET^S SYNDROME
     Route: 048
  3. CLOSTRIDIUM BUTYRICUM [Concomitant]
     Active Substance: CLOSTRIDIUM BUTYRICUM SPORES STRAIN M-55
     Indication: PROPHYLAXIS
     Route: 048
  4. COLCHICINE. [Concomitant]
     Active Substance: COLCHICINE
     Route: 048
     Dates: start: 20150213, end: 20150312
  5. SULFAMETHOXAZOLE AND TRIMETHOPRIM [Concomitant]
     Active Substance: SULFAMETHOXAZOLE\TRIMETHOPRIM
     Indication: PROPHYLAXIS
     Route: 048
     Dates: end: 20140526
  6. SOLDEM 3AG [Concomitant]
     Indication: PROPHYLAXIS
     Dosage: 50 ML/HR
     Route: 050
     Dates: end: 20140514
  7. BFLUID [Concomitant]
     Active Substance: AMINO ACIDS\DEXTROSE\ELECTROLYTES NOS\VITAMINS
     Indication: PROPHYLAXIS
     Dosage: 50 ML/HR
     Route: 050
     Dates: end: 20140513
  8. SOLDEM 3A [Concomitant]
     Active Substance: CARBOHYDRATES\POTASSIUM CHLORIDE\SODIUM CHLORIDE\SODIUM LACTATE
     Indication: PROPHYLAXIS
     Dosage: 50 ML/HR
     Route: 050
     Dates: start: 20140515, end: 20140517
  9. SULFAMETHOXAZOLE AND TRIMETHOPRIM [Concomitant]
     Active Substance: SULFAMETHOXAZOLE\TRIMETHOPRIM
     Route: 048
     Dates: start: 20150313, end: 20150322
  10. SOLDEM 3AG [Concomitant]
     Dosage: 50 ML/HR
     Dates: start: 20150316, end: 20150325
  11. REBAMIPIDE [Concomitant]
     Active Substance: REBAMIPIDE
     Indication: PROPHYLAXIS
     Route: 048
  12. ESOMEPRAZOLE MAGNESIUM. [Concomitant]
     Active Substance: ESOMEPRAZOLE MAGNESIUM
     Indication: PROPHYLAXIS
     Route: 048
     Dates: end: 20150324
  13. HUMIRA [Suspect]
     Active Substance: ADALIMUMAB
     Indication: BEHCET^S SYNDROME
     Route: 058
     Dates: start: 20140502, end: 20140502
  14. SOYBEAN OIL [Concomitant]
     Active Substance: SOYBEAN OIL
     Indication: PROPHYLAXIS
     Route: 050
     Dates: start: 20140508, end: 20140509
  15. HUMIRA [Suspect]
     Active Substance: ADALIMUMAB
     Route: 058
     Dates: start: 20140530, end: 20150328
  16. COLCHICINE. [Concomitant]
     Active Substance: COLCHICINE
     Route: 048
     Dates: start: 20150320
  17. PREDNISOLONE. [Concomitant]
     Active Substance: PREDNISOLONE
     Indication: BEHCET^S SYNDROME
     Route: 048
     Dates: end: 20150215
  18. AMLODIPINE BESILATE [Concomitant]
     Active Substance: AMLODIPINE BESYLATE
     Indication: PRODUCT USED FOR UNKNOWN INDICATION
     Route: 048
     Dates: end: 20140526
  19. HUMIRA [Suspect]
     Active Substance: ADALIMUMAB
     Route: 058
     Dates: start: 20140516, end: 20140516
  20. COLCHICINE. [Concomitant]
     Active Substance: COLCHICINE
     Indication: BEHCET^S SYNDROME
     Route: 048
     Dates: end: 20150212

REACTIONS (3)
  - Behcet^s syndrome [Recovering/Resolving]
  - Therapeutic response decreased [Unknown]
  - Transaminases increased [Recovered/Resolved]

NARRATIVE: CASE EVENT DATE: 20140519
